APPROVED DRUG PRODUCT: MEMANTINE HYDROCHLORIDE AND DONEPEZIL HYDROCHLORIDE
Active Ingredient: DONEPEZIL HYDROCHLORIDE; MEMANTINE HYDROCHLORIDE
Strength: 10MG;7MG
Dosage Form/Route: CAPSULE, EXTENDED RELEASE;ORAL
Application: A208328 | Product #003 | TE Code: AB
Applicant: AMNEAL PHARMACEUTICALS LLC
Approved: Feb 27, 2025 | RLD: No | RS: No | Type: RX